FAERS Safety Report 10470620 (Version 2)
Quarter: 2015Q1

REPORT INFORMATION
  Report Type: Spontaneous
  Country: US (occurrence: US)
  Receive Date: 20140923
  Receipt Date: 20150224
  Transmission Date: 20150720
  Serious: Yes (Death, Hospitalization, Other)
  Sender: FDA-Public Use
  Company Number: US-009507513-1409USA010748

PATIENT
  Sex: Male
  Weight: 104.76 kg

DRUGS (2)
  1. JANUVIA [Suspect]
     Active Substance: SITAGLIPTIN PHOSPHATE
     Indication: TYPE 2 DIABETES MELLITUS
     Dosage: 100 MG, QD
     Route: 048
     Dates: start: 2007, end: 2010
  2. BYETTA [Suspect]
     Active Substance: EXENATIDE
     Indication: TYPE 2 DIABETES MELLITUS
     Dosage: UNK, QD
     Route: 048
     Dates: start: 200610, end: 200612

REACTIONS (11)
  - Cholecystectomy [Unknown]
  - Cholelithiasis [Unknown]
  - Albuminuria [Unknown]
  - Gallbladder disorder [Unknown]
  - Angiopathy [Unknown]
  - Cholecystitis [Unknown]
  - Proteinuria [Unknown]
  - Transurethral prostatectomy [Unknown]
  - Nephropathy [Unknown]
  - Pancreatic carcinoma [Fatal]
  - Stent placement [Unknown]

NARRATIVE: CASE EVENT DATE: 2007
